FAERS Safety Report 15243356 (Version 1)
Quarter: 2018Q3

REPORT INFORMATION
  Report Type: Spontaneous
  Country: US (occurrence: US)
  Receive Date: 20180712
  Receipt Date: 20180712
  Transmission Date: 20181010
  Serious: Yes (Hospitalization)
  Sender: FDA-Public Use
  Company Number: None

PATIENT
  Age: 69 Year
  Sex: Female
  Weight: 46.9 kg

DRUGS (2)
  1. ERBITUX [Suspect]
     Active Substance: CETUXIMAB
     Dates: end: 20180629
  2. CAMPTOSAR [Suspect]
     Active Substance: IRINOTECAN HYDROCHLORIDE
     Dates: end: 20180629

REACTIONS (6)
  - Balance disorder [None]
  - Neuropathy peripheral [None]
  - Loss of personal independence in daily activities [None]
  - Oedema [None]
  - Exercise tolerance decreased [None]
  - Abdominal pain [None]

NARRATIVE: CASE EVENT DATE: 20180703
